FAERS Safety Report 19194363 (Version 1)
Quarter: 2021Q2

REPORT INFORMATION
  Report Type: Spontaneous
  Country: US (occurrence: US)
  Receive Date: 20210429
  Receipt Date: 20210429
  Transmission Date: 20210717
  Serious: Yes (Other)
  Sender: FDA-Public Use
  Company Number: US-SA-2021SA140394

PATIENT
  Age: 59 Year
  Sex: Female

DRUGS (2)
  1. AUBAGIO [Suspect]
     Active Substance: TERIFLUNOMIDE
     Indication: MULTIPLE SCLEROSIS
     Dosage: 14 MG, QD
     Route: 048
  2. TAGRISSO [Concomitant]
     Active Substance: OSIMERTINIB
     Dosage: UNK UNK, QD

REACTIONS (3)
  - Neoplasm malignant [Unknown]
  - Stress [Unknown]
  - Tremor [Unknown]

NARRATIVE: CASE EVENT DATE: 20210422
